FAERS Safety Report 23391061 (Version 1)
Quarter: 2024Q1

REPORT INFORMATION
  Report Type: Spontaneous
  Country: TR (occurrence: TR)
  Receive Date: 20240111
  Receipt Date: 20240111
  Transmission Date: 20240410
  Serious: Yes (Life-Threatening, Hospitalization, Other)
  Sender: FDA-Public Use
  Company Number: TR-MLMSERVICE-20231227-4744927-1

PATIENT
  Age: 26 Year
  Sex: Female

DRUGS (5)
  1. ETOPOSIDE [Suspect]
     Active Substance: ETOPOSIDE
     Indication: Ewing^s sarcoma
     Dosage: VAC/IE PROTOCOL?CUMULATIVE DOSE UNTIL FIRST REACTION: 2 CYCLICAL
  2. CYCLOPHOSPHAMIDE [Suspect]
     Active Substance: CYCLOPHOSPHAMIDE
     Indication: Ewing^s sarcoma
     Dosage: VAC/IE PROTOCOL?CUMULATIVE DOSE UNTIL FIRST REACTION: 2 CYCLICAL
  3. IFOSFAMIDE [Suspect]
     Active Substance: IFOSFAMIDE
     Indication: Ewing^s sarcoma
     Dosage: VAC/IE PROTOCOL?CUMULATIVE DOSE UNTIL FIRST REACTION: 2 CYCLICAL
  4. VINCRISTINE [Suspect]
     Active Substance: VINCRISTINE
     Indication: Ewing^s sarcoma
     Dosage: VAC/IE PROTOCOL?CUMULATIVE DOSE UNTIL FIRST REACTION: 2 CYCLICAL
  5. ADRIAMYCIN [Suspect]
     Active Substance: DOXORUBICIN HYDROCHLORIDE
     Indication: Ewing^s sarcoma
     Dosage: VAC/IE PROTOCOL?CUMULATIVE DOSE UNTIL FIRST REACTION: 2 CYCLICAL

REACTIONS (1)
  - Haematological infection [Unknown]
